FAERS Safety Report 19012167 (Version 1)
Quarter: 2021Q1

REPORT INFORMATION
  Report Type: Spontaneous
  Country: US (occurrence: US)
  Receive Date: 20210316
  Receipt Date: 20210316
  Transmission Date: 20210420
  Serious: Yes (Other)
  Sender: FDA-Public Use
  Company Number: US-BAYER-2021-105005

PATIENT
  Age: 86 Year
  Sex: Male

DRUGS (1)
  1. CIPRO [Suspect]
     Active Substance: CIPROFLOXACIN HYDROCHLORIDE
     Indication: BLOOD URINE PRESENT
     Dosage: 500 MG, PRN
     Dates: start: 201901, end: 202007

REACTIONS (3)
  - Anosmia [Not Recovered/Not Resolved]
  - Tendon rupture [Recovered/Resolved with Sequelae]
  - Ageusia [Not Recovered/Not Resolved]

NARRATIVE: CASE EVENT DATE: 201906
